FAERS Safety Report 26117055 (Version 1)
Quarter: 2025Q4

REPORT INFORMATION
  Report Type: Spontaneous
  Country: US (occurrence: None)
  Receive Date: 20251203
  Receipt Date: 20251203
  Transmission Date: 20260117
  Serious: Yes (Other)
  Sender: UCB
  Company Number: US-UCBSA-2025074943

PATIENT
  Age: 72 Year

DRUGS (1)
  1. RYSTIGGO [Suspect]
     Active Substance: ROZANOLIXIZUMAB-NOLI
     Indication: Myasthenia gravis
     Dosage: 840 MILLIGRAM, WEEKLY (QW)

REACTIONS (12)
  - Loss of consciousness [Recovered/Resolved]
  - Dyspnoea [Unknown]
  - Moaning [Unknown]
  - Erythema [Unknown]
  - Feeling hot [Unknown]
  - Dizziness [Unknown]
  - Nausea [Unknown]
  - Hyperhidrosis [Unknown]
  - Retching [Unknown]
  - Blood pressure decreased [Unknown]
  - Pallor [Unknown]
  - Feeling cold [Unknown]
